FAERS Safety Report 14038613 (Version 2)
Quarter: 2017Q4

REPORT INFORMATION
  Report Type: Spontaneous
  Country: BR (occurrence: BR)
  Receive Date: 20171004
  Receipt Date: 20171010
  Transmission Date: 20180321
  Serious: Yes (Other)
  Sender: FDA-Public Use
  Company Number: BR-TOLMAR, INC.-2017BR013164

PATIENT
  Age: 88 Year
  Sex: Male

DRUGS (1)
  1. ELIGARD [Suspect]
     Active Substance: LEUPROLIDE ACETATE
     Indication: PROSTATE CANCER
     Dosage: 45 MG, CYCLIC
     Route: 058
     Dates: start: 201703, end: 201708

REACTIONS (2)
  - Blood testosterone abnormal [Recovered/Resolved]
  - Prostatic specific antigen abnormal [Recovered/Resolved]

NARRATIVE: CASE EVENT DATE: 201703
